FAERS Safety Report 23668371 (Version 1)
Quarter: 2024Q1

REPORT INFORMATION
  Report Type: Report from Study
  Country: GB (occurrence: GB)
  Receive Date: 20240325
  Receipt Date: 20240325
  Transmission Date: 20240410
  Serious: Yes (Death, Other)
  Sender: FDA-Public Use
  Company Number: GB-NOVPHSZ-PHHY2016GB067833

PATIENT
  Age: 69 Year
  Sex: Male

DRUGS (1)
  1. OMNITROPE [Suspect]
     Active Substance: SOMATROPIN
     Indication: Hypopituitarism
     Dosage: QD
     Route: 058

REACTIONS (2)
  - Death [Fatal]
  - Hypopituitarism [Unknown]

NARRATIVE: CASE EVENT DATE: 20160510
